FAERS Safety Report 8392814-0 (Version None)
Quarter: 2012Q2

REPORT INFORMATION
  Report Type: 
  Country: None (occurrence: None)
  Receive Date: 20120529
  Receipt Date: 20120516
  Transmission Date: 20120825
  Serious: Yes (Other)
  Sender: FDA-Public Use
  Company Number: JP-ELI_LILLY_AND_COMPANY-JP201205006322

PATIENT
  Age: 75 Year
  Sex: Female

DRUGS (2)
  1. FORTEO [Suspect]
     Dosage: UNK
     Route: 058
     Dates: start: 20120509
  2. FORTEO [Suspect]
     Dosage: UNK
     Route: 058
     Dates: start: 20110601, end: 20110101

REACTIONS (2)
  - CONVULSION [None]
  - DIZZINESS [None]
